FAERS Safety Report 5985991-X (Version None)
Quarter: 2008Q4

REPORT INFORMATION
  Report Type: 
  Country: None (occurrence: None)
  Receive Date: 20081209
  Receipt Date: 20081202
  Transmission Date: 20090506
  Serious: Yes (Other)
  Sender: FDA-Public Use
  Company Number: US-JNJFOC-20081201334

PATIENT
  Sex: Male
  Weight: 72.58 kg

DRUGS (6)
  1. FENTANYL TRANSDERMAL SYSTEM [Suspect]
     Indication: BACK PAIN
     Route: 062
  2. FENTANYL TRANSDERMAL SYSTEM [Suspect]
     Indication: ARTHRITIS
     Route: 062
  3. OXYCODONE HCL [Concomitant]
     Indication: PAIN
     Route: 048
  4. MOTRIN [Concomitant]
     Indication: PAIN
     Route: 048
  5. UNKNOWN DRUGS [Concomitant]
     Indication: GASTROOESOPHAGEAL REFLUX DISEASE
  6. IMITREX [Concomitant]
     Indication: MIGRAINE
     Route: 048

REACTIONS (8)
  - AGITATION [None]
  - DEVICE FAILURE [None]
  - INADEQUATE ANALGESIA [None]
  - MUSCLE SPASMS [None]
  - PAIN [None]
  - RHINORRHOEA [None]
  - WITHDRAWAL SYNDROME [None]
  - WRONG TECHNIQUE IN DRUG USAGE PROCESS [None]
